FAERS Safety Report 18277161 (Version 1)
Quarter: 2020Q3

REPORT INFORMATION
  Report Type: Spontaneous
  Country: US (occurrence: US)
  Receive Date: 20200917
  Receipt Date: 20200917
  Transmission Date: 20201103
  Serious: No
  Sender: FDA-Public Use
  Company Number: US-ALLERGAN-1944288US

PATIENT
  Age: 1 Year
  Weight: 11.2 kg

DRUGS (4)
  1. CARAFATE [Suspect]
     Active Substance: SUCRALFATE
     Dosage: 10 ML, QID
     Route: 048
     Dates: start: 201910
  2. BACTRIM [Concomitant]
     Active Substance: SULFAMETHOXAZOLE\TRIMETHOPRIM
     Indication: RENAL DISORDER
     Dosage: UNK
     Route: 065
  3. CARAFATE [Suspect]
     Active Substance: SUCRALFATE
     Indication: HAND-FOOT-AND-MOUTH DISEASE
     Dosage: 1 ML, QID
     Route: 048
     Dates: start: 201910
  4. BREATHING TREATMENTS (UNSPECIFIED) [Concomitant]
     Indication: PRODUCT USED FOR UNKNOWN INDICATION
     Dosage: UNK
     Route: 065

REACTIONS (2)
  - Off label use [Unknown]
  - Abdominal discomfort [Unknown]

NARRATIVE: CASE EVENT DATE: 201910
